FAERS Safety Report 4313930-6 (Version None)
Quarter: 2004Q1

REPORT INFORMATION
  Report Type: 
  Country: None (occurrence: None)
  Receive Date: 20040305
  Receipt Date: 20031201
  Transmission Date: 20041129
  Serious: Yes (Hospitalization)
  Sender: FDA-Public Use
  Company Number: USA-2003-0013553

PATIENT
  Age: 86 Year
  Sex: Male

DRUGS (5)
  1. CHIROCAINE [Suspect]
     Indication: ANAESTHESIA
     Dates: start: 20030521, end: 20030524
  2. CHIROCAINE [Suspect]
     Indication: PAIN MANAGEMENT
     Dates: start: 20030521, end: 20030524
  3. MEPIVACAINE HCL [Concomitant]
  4. BUPIVACAINE [Concomitant]
  5. SUFENTANIL CITRATE [Concomitant]

REACTIONS (4)
  - FAECAL INCONTINENCE [None]
  - GAIT DISTURBANCE [None]
  - SENSORY DISTURBANCE [None]
  - URINARY INCONTINENCE [None]
